FAERS Safety Report 4618356-3 (Version None)
Quarter: 2005Q1

REPORT INFORMATION
  Report Type: 
  Country: None (occurrence: None)
  Receive Date: 20050324
  Receipt Date: 20050316
  Transmission Date: 20050727
  Serious: Yes (Hospitalization)
  Sender: FDA-Public Use
  Company Number: JP-MERCK-0503USA03165

PATIENT
  Age: 50 Year
  Sex: Female

DRUGS (3)
  1. DECADRON [Suspect]
     Indication: CERVIX CARCINOMA
     Route: 048
  2. CARBOPLATIN [Concomitant]
     Indication: CERVIX CARCINOMA
     Route: 042
  3. ETOPOSIDE [Concomitant]
     Indication: CERVIX CARCINOMA
     Route: 065

REACTIONS (2)
  - HEPATITIS B [None]
  - HYPERTHERMIA [None]
